FAERS Safety Report 24637404 (Version 1)
Quarter: 2024Q4

REPORT INFORMATION
  Report Type: Spontaneous
  Country: US (occurrence: US)
  Receive Date: 20241119
  Receipt Date: 20241119
  Transmission Date: 20250115
  Serious: No
  Sender: LEXICON PHARMACEUTICALS
  Company Number: US-LEX-000524

PATIENT
  Age: 85 Year
  Sex: Male

DRUGS (1)
  1. INPEFA [Suspect]
     Active Substance: SOTAGLIFLOZIN
     Indication: Product used for unknown indication
     Route: 048
     Dates: start: 20240912

REACTIONS (3)
  - Paranoia [Unknown]
  - Polyuria [Unknown]
  - Mood altered [Unknown]

NARRATIVE: CASE EVENT DATE: 20240901
